FAERS Safety Report 5139208-9 (Version None)
Quarter: 2006Q4

REPORT INFORMATION
  Report Type: 
  Country: None (occurrence: None)
  Receive Date: 20061030
  Receipt Date: 20060712
  Transmission Date: 20070319
  Serious: No
  Sender: FDA-Public Use
  Company Number: US-GLAXOSMITHKLINE-A0612031A

PATIENT
  Age: 59 Year
  Sex: Female

DRUGS (5)
  1. ADVAIR HFA [Suspect]
     Indication: ASTHMA
     Dosage: 1PUFF TWICE PER DAY
     Route: 055
  2. SYNTHROID [Concomitant]
  3. TYLENOL [Concomitant]
  4. ULTRAM [Concomitant]
  5. MULTI-VITAMIN [Concomitant]

REACTIONS (5)
  - ANOREXIA [None]
  - FUNGAL INFECTION [None]
  - NASOPHARYNGEAL DISORDER [None]
  - SENSATION OF FOREIGN BODY [None]
  - WEIGHT DECREASED [None]
